FAERS Safety Report 7257287-X (Version None)
Quarter: 2011Q1

REPORT INFORMATION
  Report Type: 
  Country: None (occurrence: None)
  Receive Date: 20110129
  Receipt Date: 20100720
  Transmission Date: 20110831
  Serious: No
  Sender: FDA-Public Use
  Company Number: US-ABBOTT-10P-163-0658727-00

PATIENT
  Age: 60 Year
  Sex: Male

DRUGS (5)
  1. FOLIC ACID [Concomitant]
     Indication: PRODUCT USED FOR UNKNOWN INDICATION
  2. PREDNISONE [Concomitant]
     Indication: PRODUCT USED FOR UNKNOWN INDICATION
  3. HUMIRA [Suspect]
     Indication: RHEUMATOID ARTHRITIS
     Dates: start: 20091201
  4. HYDROXICHLOROQUILE [Concomitant]
     Indication: PRODUCT USED FOR UNKNOWN INDICATION
  5. METHOTREXATE [Concomitant]
     Indication: PRODUCT USED FOR UNKNOWN INDICATION

REACTIONS (3)
  - INJECTION SITE VESICLES [None]
  - ACNE [None]
  - BLISTER [None]
